FAERS Safety Report 17243931 (Version 5)
Quarter: 2020Q1

REPORT INFORMATION
  Report Type: Spontaneous
  Country: US (occurrence: US)
  Receive Date: 20200107
  Receipt Date: 20200228
  Transmission Date: 20200409
  Serious: Yes (Hospitalization)
  Sender: FDA-Public Use
  Company Number: US-ACTELION-A-US2020-200230

PATIENT
  Age: 37 Year
  Sex: Female
  Weight: 63.49 kg

DRUGS (3)
  1. WARFARIN [Concomitant]
     Active Substance: WARFARIN
  2. REMODULIN [Suspect]
     Active Substance: TREPROSTINIL
     Indication: PRODUCT USED FOR UNKNOWN INDICATION
     Route: 065
  3. OPSUMIT [Suspect]
     Active Substance: MACITENTAN
     Indication: PULMONARY ARTERIAL HYPERTENSION
     Dosage: 10 MG, QD
     Route: 048
     Dates: end: 202001

REACTIONS (11)
  - Throat irritation [Unknown]
  - Infusion site swelling [Unknown]
  - Influenza [Unknown]
  - Hypotension [Unknown]
  - Infusion site erythema [Unknown]
  - Cough [Unknown]
  - Nasopharyngitis [Unknown]
  - Rhinorrhoea [Unknown]
  - Nasal congestion [Unknown]
  - Pulmonary arterial hypertension [Unknown]
  - Pain [Unknown]

NARRATIVE: CASE EVENT DATE: 201912
